FAERS Safety Report 16349415 (Version 1)
Quarter: 2019Q2

REPORT INFORMATION
  Report Type: Spontaneous
  Country: US (occurrence: US)
  Receive Date: 20190523
  Receipt Date: 20190523
  Transmission Date: 20190711
  Serious: Yes (Hospitalization)
  Sender: FDA-Public Use
  Company Number: US-PFIZER INC-2019219403

PATIENT
  Sex: Female

DRUGS (1)
  1. LORBRENA [Suspect]
     Active Substance: LORLATINIB
     Indication: NON-SMALL CELL LUNG CANCER
     Dosage: UNK

REACTIONS (7)
  - Anosmia [Unknown]
  - Pain [Unknown]
  - Insomnia [Unknown]
  - Neuropathy peripheral [Unknown]
  - Ingrowing nail [Unknown]
  - Slow speech [Unknown]
  - Thinking abnormal [Unknown]
